FAERS Safety Report 17229651 (Version 2)
Quarter: 2020Q3

REPORT INFORMATION
  Report Type: Spontaneous
  Country: US (occurrence: US)
  Receive Date: 20200103
  Receipt Date: 20200923
  Transmission Date: 20201102
  Serious: Yes (Other)
  Sender: FDA-Public Use
  Company Number: US-ASTRAZENECA-2020SE01326

PATIENT
  Age: 22610 Day
  Sex: Male
  Weight: 123.8 kg

DRUGS (43)
  1. ALLOPURINOL. [Concomitant]
     Active Substance: ALLOPURINOL
  2. ONGLYZA [Concomitant]
     Active Substance: SAXAGLIPTIN HYDROCHLORIDE
  3. AFLURIA NOS [Concomitant]
     Active Substance: INFLUENZA VIRUS VACCINE TRIVALENT TYPE A+B AFLURIA
  4. ILEVRO [Concomitant]
     Active Substance: NEPAFENAC
  5. BYETTA [Concomitant]
     Active Substance: EXENATIDE
  6. HYDRALAZINE [Concomitant]
     Active Substance: HYDRALAZINE HYDROCHLORIDE
  7. FUROSEMIDE. [Concomitant]
     Active Substance: FUROSEMIDE
  8. AZITHROMYCIN ANHYDROUS. [Concomitant]
     Active Substance: AZITHROMYCIN ANHYDROUS
  9. NEXIUM [Suspect]
     Active Substance: ESOMEPRAZOLE MAGNESIUM
     Indication: GASTROOESOPHAGEAL REFLUX DISEASE
     Route: 048
     Dates: start: 2009, end: 2016
  10. DICYCLOMINE [Concomitant]
     Active Substance: DICYCLOMINE HYDROCHLORIDE
  11. GABAPENTIN. [Concomitant]
     Active Substance: GABAPENTIN
  12. CHERATUSSIN [Concomitant]
     Active Substance: AMMONIUM CHLORIDE\DEXTROMETHORPHAN\SODIUM CITRATE
  13. NEXIUM [Suspect]
     Active Substance: ESOMEPRAZOLE MAGNESIUM
     Indication: GASTROOESOPHAGEAL REFLUX DISEASE
     Route: 048
     Dates: start: 20130510
  14. LANTUS [Concomitant]
     Active Substance: INSULIN GLARGINE
  15. FLUTICASONE. [Concomitant]
     Active Substance: FLUTICASONE
  16. SPIRONOLACTONE. [Concomitant]
     Active Substance: SPIRONOLACTONE
  17. SERTRALINE [Concomitant]
     Active Substance: SERTRALINE HYDROCHLORIDE
  18. NEXIUM [Suspect]
     Active Substance: ESOMEPRAZOLE MAGNESIUM
     Indication: GASTROOESOPHAGEAL REFLUX DISEASE
     Route: 048
     Dates: start: 20120118
  19. LOSARTAN. [Concomitant]
     Active Substance: LOSARTAN
     Indication: HYPERTENSION
     Dates: start: 2012, end: 2018
  20. AXIRON [Concomitant]
     Active Substance: TESTOSTERONE
  21. DUREZOL [Concomitant]
     Active Substance: DIFLUPREDNATE
  22. PROMETHAZINE [Concomitant]
     Active Substance: PROMETHAZINE HYDROCHLORIDE
  23. NEXIUM [Suspect]
     Active Substance: ESOMEPRAZOLE MAGNESIUM
     Indication: GASTROOESOPHAGEAL REFLUX DISEASE
     Route: 048
     Dates: start: 20140626
  24. LOVASTATIN. [Concomitant]
     Active Substance: LOVASTATIN
  25. KLOR?CON [Concomitant]
     Active Substance: POTASSIUM CHLORIDE
  26. HYDROCODON?ACETAMINOPHEN [Concomitant]
     Active Substance: ACETAMINOPHEN\HYDROCODONE
  27. CLINDAMYCIN. [Concomitant]
     Active Substance: CLINDAMYCIN
  28. STAXYN [Concomitant]
     Active Substance: VARDENAFIL HYDROCHLORIDE
  29. LEVITRA [Concomitant]
     Active Substance: VARDENAFIL HYDROCHLORIDE
  30. PIROXICAM. [Concomitant]
     Active Substance: PIROXICAM
  31. FINACEA [Concomitant]
     Active Substance: AZELAIC ACID
  32. NEXIUM [Suspect]
     Active Substance: ESOMEPRAZOLE MAGNESIUM
     Indication: GASTROOESOPHAGEAL REFLUX DISEASE
     Route: 048
     Dates: start: 200903, end: 201708
  33. NEXIUM [Suspect]
     Active Substance: ESOMEPRAZOLE MAGNESIUM
     Indication: GASTROOESOPHAGEAL REFLUX DISEASE
     Route: 048
     Dates: start: 20120315
  34. NEXIUM [Suspect]
     Active Substance: ESOMEPRAZOLE MAGNESIUM
     Indication: GASTROOESOPHAGEAL REFLUX DISEASE
     Route: 048
     Dates: start: 20150128
  35. TESTIM [Concomitant]
     Active Substance: TESTOSTERONE
  36. TAMSULOSIN [Concomitant]
     Active Substance: TAMSULOSIN
  37. VITAMIN D2 [Concomitant]
     Active Substance: ERGOCALCIFEROL
  38. ZOLPIDEM [Concomitant]
     Active Substance: ZOLPIDEM TARTRATE
  39. FEXOFENADINE [Concomitant]
     Active Substance: FEXOFENADINE HYDROCHLORIDE
  40. COZAAR [Concomitant]
     Active Substance: LOSARTAN POTASSIUM
  41. JANUVIA [Concomitant]
     Active Substance: SITAGLIPTIN PHOSPHATE
     Indication: DIABETES MELLITUS
     Dates: start: 2015, end: 2017
  42. CARVEDILOL. [Concomitant]
     Active Substance: CARVEDILOL
     Indication: HYPERTENSION
     Dates: start: 2012, end: 2018
  43. CEPHALEXIN. [Concomitant]
     Active Substance: CEPHALEXIN

REACTIONS (3)
  - Chronic kidney disease [Not Recovered/Not Resolved]
  - Acute kidney injury [Unknown]
  - Nephrogenic anaemia [Unknown]

NARRATIVE: CASE EVENT DATE: 20140904
